FAERS Safety Report 12673942 (Version 1)
Quarter: 2016Q3

REPORT INFORMATION
  Report Type: Spontaneous
  Country: IT (occurrence: IT)
  Receive Date: 20160822
  Receipt Date: 20160822
  Transmission Date: 20161109
  Serious: Yes (Hospitalization)
  Sender: FDA-Public Use
  Company Number: IT-ABBVIE-16K-083-1703126-00

PATIENT
  Age: 35 Year
  Sex: Female

DRUGS (2)
  1. ETORICOXIB [Concomitant]
     Active Substance: ETORICOXIB
     Indication: PRODUCT USED FOR UNKNOWN INDICATION
     Route: 048
  2. HUMIRA [Suspect]
     Active Substance: ADALIMUMAB
     Indication: SPONDYLITIS
     Route: 058
     Dates: start: 20110901, end: 20160601

REACTIONS (4)
  - Myelitis [Unknown]
  - Paraesthesia [Unknown]
  - Dysaesthesia [Unknown]
  - CSF oligoclonal band present [Unknown]

NARRATIVE: CASE EVENT DATE: 20160601
